FAERS Safety Report 8389611 (Version 2)
Quarter: 2012Q4

REPORT INFORMATION
  Report Type: Report from Study
  Country: FR (occurrence: FR)
  Receive Date: 20120203
  Receipt Date: 20121113
  Transmission Date: 20130627
  Serious: Yes (Death)
  Sender: FDA-Public Use
  Company Number: FR-ACTELION-A-CH2012-60300

PATIENT
  Age: 51 Year
  Sex: Female

DRUGS (2)
  1. TRACLEER [Suspect]
     Indication: DIGITAL ULCER
     Dosage: 62.5 mg, bid
     Route: 048
     Dates: start: 20101103, end: 20101118
  2. TRACLEER [Suspect]
     Dosage: 125 mg, bid
     Route: 048
     Dates: start: 20100130, end: 20100916

REACTIONS (1)
  - Sudden death [Fatal]
